FAERS Safety Report 9496325 (Version 1)
Quarter: 2013Q3

REPORT INFORMATION
  Report Type: Spontaneous
  Country: BR (occurrence: BR)
  Receive Date: 20130904
  Receipt Date: 20130904
  Transmission Date: 20140515
  Serious: Yes (Other)
  Sender: FDA-Public Use
  Company Number: BR-SANOFI-AVENTIS-2013SA087010

PATIENT
  Age: 71 Year
  Sex: Female
  Weight: 47 kg

DRUGS (6)
  1. LANTUS [Suspect]
     Indication: TYPE 2 DIABETES MELLITUS
     Route: 058
     Dates: start: 2006
  2. APIDRA [Suspect]
     Indication: TYPE 2 DIABETES MELLITUS
     Route: 058
     Dates: start: 2006
  3. LIPITOR [Concomitant]
     Indication: BLOOD CHOLESTEROL
  4. DIOVANE [Concomitant]
     Indication: HYPERTENSION
  5. FUROSEMIDE [Concomitant]
     Indication: HYPERTENSION
  6. CAPZASIN NO MESS APPLICATOR [Concomitant]

REACTIONS (3)
  - Renal disorder [Recovering/Resolving]
  - Diabetes mellitus [Recovering/Resolving]
  - Adverse event [Recovering/Resolving]
